FAERS Safety Report 4351132-8 (Version None)
Quarter: 2004Q2

REPORT INFORMATION
  Report Type: 
  Country: None (occurrence: None)
  Receive Date: 20040430
  Receipt Date: 20040308
  Transmission Date: 20050107
  Serious: Yes (Death, Life-Threatening, Hospitalization, Disabling)
  Sender: FDA-Public Use
  Company Number: US-MERCK-0403USA00846

PATIENT
  Age: 85 Year
  Sex: Female

DRUGS (20)
  1. ALPRAZOLAM [Concomitant]
     Route: 065
  2. ARTIFICIAL TEARS [Concomitant]
     Route: 047
  3. TESSALON [Concomitant]
     Route: 048
  4. DULCOLAX [Concomitant]
     Route: 048
  5. CALCITRIOL [Concomitant]
     Route: 048
  6. ARANESP [Concomitant]
     Route: 058
  7. DIGOXIN [Concomitant]
     Route: 048
  8. COLACE [Concomitant]
     Route: 048
  9. INSULIN [Concomitant]
     Route: 065
  10. XALATAN [Concomitant]
     Route: 047
  11. LEVOTHYROXINE SODIUM [Concomitant]
     Route: 048
  12. CLARITIN [Concomitant]
     Route: 048
  13. METOPROLOL [Concomitant]
     Route: 048
  14. REMERON [Concomitant]
     Route: 048
  15. NITROGLYCERIN [Concomitant]
     Indication: CHEST PAIN
     Route: 060
  16. PROTONIX [Concomitant]
     Route: 048
  17. DARVON [Concomitant]
     Route: 065
  18. VIOXX [Suspect]
     Indication: OSTEOARTHRITIS
     Route: 048
     Dates: start: 20040220, end: 20040301
  19. VIOXX [Suspect]
     Indication: OEDEMA PERIPHERAL
     Route: 048
     Dates: start: 20040220, end: 20040301
  20. VITAMINS (UNSPECIFIED) [Concomitant]
     Route: 048

REACTIONS (9)
  - ATRIAL FIBRILLATION [None]
  - CARDIAC FAILURE CONGESTIVE [None]
  - CONDUCTION DISORDER [None]
  - ELECTROCARDIOGRAM QT PROLONGED [None]
  - ELECTROCARDIOGRAM ST-T SEGMENT ABNORMAL [None]
  - HEPATIC CONGESTION [None]
  - HYPERKALAEMIA [None]
  - RENAL FAILURE ACUTE [None]
  - THERAPY NON-RESPONDER [None]
